FAERS Safety Report 10757836 (Version 1)
Quarter: 2015Q1

REPORT INFORMATION
  Report Type: Spontaneous
  Country: BR (occurrence: BR)
  Receive Date: 20150203
  Receipt Date: 20150203
  Transmission Date: 20150721
  Serious: Yes (Hospitalization)
  Sender: FDA-Public Use
  Company Number: BR-ASTRAZENECA-2015SE09833

PATIENT
  Age: 50 Year
  Sex: Male
  Weight: 107 kg

DRUGS (5)
  1. ATACAND [Suspect]
     Active Substance: CANDESARTAN CILEXETIL
     Indication: HYPERTENSION
     Route: 048
     Dates: end: 2013
  2. CRESTOR [Suspect]
     Active Substance: ROSUVASTATIN CALCIUM
     Route: 048
  3. OLMETEC [Concomitant]
     Active Substance: OLMESARTAN MEDOXOMIL
     Indication: HYPERTENSION
     Dates: end: 201501
  4. BROMOPRIDE [Concomitant]
     Active Substance: BROMOPRIDE
     Indication: TYPE 2 DIABETES MELLITUS
  5. METFORMIN (NON-AZ PRODUCT) [Suspect]
     Active Substance: METFORMIN HYDROCHLORIDE
     Indication: TYPE 2 DIABETES MELLITUS
     Dosage: DAILY
     Route: 048

REACTIONS (2)
  - Arterial occlusive disease [Recovered/Resolved]
  - Blood pressure diastolic abnormal [Recovered/Resolved]

NARRATIVE: CASE EVENT DATE: 2013
